FAERS Safety Report 21897871 (Version 2)
Quarter: 2023Q1

REPORT INFORMATION
  Report Type: Report from Study
  Country: US (occurrence: US)
  Receive Date: 20230123
  Receipt Date: 20230203
  Transmission Date: 20230417
  Serious: No
  Sender: FDA-Public Use
  Company Number: US-BIOVITRUM-2023US01074

PATIENT
  Sex: Female

DRUGS (27)
  1. KINERET [Suspect]
     Active Substance: ANAKINRA
     Indication: Product used for unknown indication
     Dates: start: 20221226
  2. NALOXONE HCL [Concomitant]
     Active Substance: NALOXONE HYDROCHLORIDE
     Dosage: PRN
  3. PROMETHAZINE [Concomitant]
     Active Substance: PROMETHAZINE HYDROCHLORIDE
     Dosage: PRN
  4. DIPHENHYDRAMINE [Concomitant]
     Active Substance: DIPHENHYDRAMINE
     Dosage: PRN
  5. EPINEPHRINE [Concomitant]
     Active Substance: EPINEPHRINE
     Dosage: PRN
  6. IBUPROFEN [Concomitant]
     Active Substance: IBUPROFEN
     Dosage: PRN
  7. OMEPRAZOLE [Concomitant]
     Active Substance: OMEPRAZOLE
  8. CYANOCOBALAMIN [Concomitant]
     Active Substance: CYANOCOBALAMIN
  9. CYCLOSPORINE [Concomitant]
     Active Substance: CYCLOSPORINE
  10. MONTELUKAST [Concomitant]
     Active Substance: MONTELUKAST SODIUM
  11. FLUTICASONE [Concomitant]
     Active Substance: FLUTICASONE
  12. OMALIZUMAB [Concomitant]
     Active Substance: OMALIZUMAB
  13. TRIAMCINOLONE [Concomitant]
     Active Substance: TRIAMCINOLONE
  14. CROMOLYN [Concomitant]
     Active Substance: CROMOLYN
  15. INTAL [Concomitant]
     Active Substance: CROMOLYN SODIUM
  16. OXYCODONE [Concomitant]
     Active Substance: OXYCODONE
  17. CHOLECALCIFEROL [Concomitant]
     Active Substance: CHOLECALCIFEROL
  18. SERTRALINE [Concomitant]
     Active Substance: SERTRALINE HYDROCHLORIDE
  19. ACETAMINOPHEN [Concomitant]
     Active Substance: ACETAMINOPHEN
  20. FEXOFENADINE HCL [Concomitant]
     Active Substance: FEXOFENADINE HYDROCHLORIDE
  21. DIAZEPAM [Concomitant]
     Active Substance: DIAZEPAM
  22. CLONAZEPAM [Concomitant]
     Active Substance: CLONAZEPAM
  23. POLYETHYLENE GLYCOLS [Concomitant]
     Active Substance: POLYETHYLENE GLYCOLS
  24. BUTALBITAL, ACETAMINOPHEN, AND CAFFEINE [Concomitant]
     Active Substance: ACETAMINOPHEN\BUTALBITAL\CAFFEINE
  25. BUPROPION [Concomitant]
     Active Substance: BUPROPION
  26. GASTROCROM [Concomitant]
     Active Substance: CROMOLYN SODIUM
  27. CYCLOBENZAPRINE [Concomitant]
     Active Substance: CYCLOBENZAPRINE

REACTIONS (7)
  - Nausea [Recovering/Resolving]
  - Fatigue [Recovering/Resolving]
  - Myalgia [Recovering/Resolving]
  - Abdominal discomfort [Recovering/Resolving]
  - Injection site urticaria [Unknown]
  - Injection site pruritus [Unknown]
  - Injection site pain [Unknown]
